FAERS Safety Report 23530830 (Version 1)
Quarter: 2024Q1

REPORT INFORMATION
  Report Type: Spontaneous
  Country: GR (occurrence: GR)
  Receive Date: 20240216
  Receipt Date: 20240216
  Transmission Date: 20240410
  Serious: Yes (Hospitalization)
  Sender: FDA-Public Use
  Company Number: None

PATIENT
  Age: 5 Year
  Sex: Female
  Weight: 16 kg

DRUGS (2)
  1. MESALAMINE [Suspect]
     Active Substance: MESALAMINE
     Indication: Colitis ulcerative
     Dosage: 1 SUPPOSITORY ONCE A DAY
     Route: 054
     Dates: start: 20221123, end: 20221123
  2. PIPERACILLIN SODIUM\TAZOBACTAM SODIUM [Concomitant]
     Active Substance: PIPERACILLIN SODIUM\TAZOBACTAM SODIUM
     Indication: Prophylaxis
     Dosage: 1400 MG 3 TIMES PER DAY
     Route: 042
     Dates: start: 20221118, end: 20221123

REACTIONS (1)
  - Leukocytosis [Recovering/Resolving]

NARRATIVE: CASE EVENT DATE: 20221123
